FAERS Safety Report 6574503-8 (Version None)
Quarter: 2010Q1

REPORT INFORMATION
  Report Type: 
  Country: None (occurrence: None)
  Receive Date: 20100209
  Receipt Date: 20091014
  Transmission Date: 20100710
  Serious: No
  Sender: FDA-Public Use
  Company Number: A0811807A

PATIENT
  Age: 78 Year
  Sex: Female

DRUGS (4)
  1. PAXIL [Suspect]
     Indication: DEPRESSION
     Route: 048
     Dates: start: 20090801
  2. WELLBUTRIN [Suspect]
     Indication: DEPRESSION
     Route: 048
     Dates: start: 20090601, end: 20090801
  3. NAMENDA [Concomitant]
  4. ROXCIN [Concomitant]

REACTIONS (3)
  - ABDOMINAL DISCOMFORT [None]
  - GASTROOESOPHAGEAL REFLUX DISEASE [None]
  - PRURITUS [None]
